FAERS Safety Report 17597342 (Version 1)
Quarter: 2020Q1

REPORT INFORMATION
  Report Type: Spontaneous
  Country: CA (occurrence: CA)
  Receive Date: 20200330
  Receipt Date: 20200330
  Transmission Date: 20200409
  Serious: Yes (Other)
  Sender: FDA-Public Use
  Company Number: CA-SA-2020SA068726

PATIENT
  Age: 80 Year
  Sex: Female

DRUGS (9)
  1. PLAQUENIL [Suspect]
     Active Substance: HYDROXYCHLOROQUINE SULFATE
     Indication: PRODUCT USED FOR UNKNOWN INDICATION
  2. ARNICA MONTANA. [Concomitant]
     Active Substance: HOMEOPATHICS
     Indication: PRODUCT USED FOR UNKNOWN INDICATION
  3. GOLD BOND ORIGINAL STRENGTH POWDER [Suspect]
     Active Substance: MENTHOL\ZINC OXIDE
     Indication: PRODUCT USED FOR UNKNOWN INDICATION
  4. HUMIRA [Suspect]
     Active Substance: ADALIMUMAB
     Indication: RHEUMATOID ARTHRITIS
     Route: 058
  5. ASA [Concomitant]
     Active Substance: ASPIRIN
     Indication: PRODUCT USED FOR UNKNOWN INDICATION
  6. FOLIC ACID. [Concomitant]
     Active Substance: FOLIC ACID
     Indication: PRODUCT USED FOR UNKNOWN INDICATION
  7. METHOTREXATE. [Suspect]
     Active Substance: METHOTREXATE
     Indication: RHEUMATOID ARTHRITIS
     Dosage: 10 MG
     Route: 048
  8. CALCIUM [Concomitant]
     Active Substance: CALCIUM
     Indication: PRODUCT USED FOR UNKNOWN INDICATION
  9. ARAVA [Suspect]
     Active Substance: LEFLUNOMIDE
     Indication: PRODUCT USED FOR UNKNOWN INDICATION

REACTIONS (16)
  - Toe amputation [Unknown]
  - Drug hypersensitivity [Unknown]
  - Balance disorder [Unknown]
  - Irritable bowel syndrome [Unknown]
  - Surgery [Unknown]
  - Coronary artery bypass [Unknown]
  - Lung neoplasm malignant [Unknown]
  - Dermatitis allergic [Unknown]
  - Pain in extremity [Unknown]
  - Infection [Unknown]
  - Arthralgia [Unknown]
  - Back pain [Unknown]
  - Hand deformity [Unknown]
  - Cardiac disorder [Unknown]
  - Foot deformity [Unknown]
  - Therapeutic product effect decreased [Unknown]
